FAERS Safety Report 26027603 (Version 1)
Quarter: 2025Q4

REPORT INFORMATION
  Report Type: Spontaneous
  Country: US (occurrence: US)
  Receive Date: 20251111
  Receipt Date: 20251111
  Transmission Date: 20260118
  Serious: Yes (Hospitalization, Other)
  Sender: SANOFI AVENTIS
  Company Number: US-SA-2025SA333511

PATIENT
  Age: 76 Year
  Sex: Female
  Weight: 87.27 kg

DRUGS (16)
  1. DUPIXENT [Suspect]
     Active Substance: DUPILUMAB
     Indication: Neurodermatitis
     Dosage: 300 MG, QOW
     Route: 058
  2. DUPIXENT [Suspect]
     Active Substance: DUPILUMAB
     Indication: Dermatitis atopic
  3. CICLOPIROX [Concomitant]
     Active Substance: CICLOPIROX
     Dosage: UNK
  4. SODIUM CHLORIDE [Concomitant]
     Active Substance: SODIUM CHLORIDE
     Dosage: UNK
  5. TACROLIMUS [Concomitant]
     Active Substance: TACROLIMUS
     Dosage: UNK
  6. BISMUTH [Concomitant]
     Active Substance: BISMUTH SUBSALICYLATE
     Dosage: UNK
  7. GABAPENTIN [Concomitant]
     Active Substance: GABAPENTIN
     Dosage: UNK
  8. VITAMIN D [Concomitant]
     Active Substance: VITAMIN D NOS
     Dosage: UNK
  9. FAMOTIDINE [Concomitant]
     Active Substance: FAMOTIDINE
     Dosage: UNK
  10. CALCIUM [Concomitant]
     Active Substance: CALCIUM
     Dosage: UNK
  11. DULOXETINE HYDROCHLORIDE [Concomitant]
     Active Substance: DULOXETINE HYDROCHLORIDE
     Dosage: UNK
  12. PROTONIX [Concomitant]
     Active Substance: PANTOPRAZOLE SODIUM
     Dosage: UNK
  13. MONTELUKAST SODIUM [Concomitant]
     Active Substance: MONTELUKAST SODIUM
     Dosage: UNK
  14. CELEBREX [Concomitant]
     Active Substance: CELECOXIB
     Dosage: UNK
  15. ELIQUIS [Concomitant]
     Active Substance: APIXABAN
     Dosage: UNK
  16. FLONASE ALLERGY RELIEF [Concomitant]
     Active Substance: FLUTICASONE PROPIONATE
     Dosage: UNK

REACTIONS (4)
  - Pulmonary embolism [Unknown]
  - Dyspnoea [Unknown]
  - Back pain [Unknown]
  - Drug ineffective [Unknown]

NARRATIVE: CASE EVENT DATE: 20250101
